FAERS Safety Report 15849383 (Version 2)
Quarter: 2019Q2

REPORT INFORMATION
  Report Type: Spontaneous
  Country: RU (occurrence: RU)
  Receive Date: 20190121
  Receipt Date: 20190403
  Transmission Date: 20190711
  Serious: Yes (Other)
  Sender: FDA-Public Use
  Company Number: RU-SA-2019SA013679

PATIENT
  Age: 46 Year
  Sex: Female
  Weight: 85 kg

DRUGS (1)
  1. PLAVIX [Suspect]
     Active Substance: CLOPIDOGREL BISULFATE
     Indication: ANTIPLATELET THERAPY
     Dosage: 75MG ONCE A DAY
     Route: 048
     Dates: start: 20180601, end: 20181214

REACTIONS (3)
  - General physical health deterioration [Not Recovered/Not Resolved]
  - Tinnitus [Not Recovered/Not Resolved]
  - Drug ineffective [Unknown]

NARRATIVE: CASE EVENT DATE: 20181203
